FAERS Safety Report 9238655 (Version 1)
Quarter: 2013Q1

REPORT INFORMATION
  Report Type: Spontaneous
  Country: US (occurrence: None)
  Receive Date: 20121101
  Receipt Date: 20121101
  Transmission Date: 20140127
  Serious: No
  Sender: FDA-Public Use
  Company Number: 2012MZ000360

PATIENT
  Age: 22 Year
  Sex: Female

DRUGS (1)
  1. XEOMIN [Suspect]
     Indication: BLEPHAROSPASM
     Dates: start: 201207, end: 201207

REACTIONS (1)
  - Injection site pain [None]
